FAERS Safety Report 5770841-7 (Version None)
Quarter: 2008Q2

REPORT INFORMATION
  Report Type: 
  Country: None (occurrence: None)
  Receive Date: 20080613
  Receipt Date: 20080513
  Transmission Date: 20081010
  Serious: No
  Sender: FDA-Public Use
  Company Number: US-ABBOTT-08P-163-0452253-00

PATIENT
  Sex: Female
  Weight: 90.346 kg

DRUGS (7)
  1. HUMIRA [Suspect]
     Indication: CROHN'S DISEASE
     Dosage: STARTER DOSE
     Route: 058
     Dates: start: 20080301, end: 20080301
  2. BUDESONIDE [Concomitant]
     Indication: CROHN'S DISEASE
     Route: 048
     Dates: start: 20070515
  3. MESALAMINE [Concomitant]
     Indication: CROHN'S DISEASE
     Dosage: DIVIDED DOSE
     Route: 048
     Dates: start: 20070223
  4. VENTYL [Concomitant]
     Indication: PAIN
     Dosage: 20 MG CAP ONE CAP BEFORE MEALS AND ONE AT BEDTIME
     Route: 048
     Dates: start: 20080506
  5. VENTYL [Concomitant]
     Indication: MUSCLE SPASMS
  6. PROMETHAZINE [Concomitant]
     Indication: NAUSEA
     Dosage: 25 MG EVERY 6 HOURS AS NEEDED
     Route: 048
     Dates: start: 20080425
  7. VICODIN [Concomitant]
     Indication: PAIN
     Dosage: 5/500 MG ONE TAB EVERY 4 HOURS AS NEEDED
     Route: 048
     Dates: start: 20080421

REACTIONS (2)
  - ABDOMINAL PAIN [None]
  - DIARRHOEA HAEMORRHAGIC [None]
